FAERS Safety Report 7948363-4 (Version None)
Quarter: 2011Q4

REPORT INFORMATION
  Report Type: 
  Country: None (occurrence: None)
  Receive Date: 20111123
  Receipt Date: 20111122
  Transmission Date: 20120403
  Serious: No
  Sender: FDA-Public Use
  Company Number: 02100-JPN-07-0665

PATIENT
  Age: 70 Year
  Sex: Female

DRUGS (6)
  1. BISOPROLOL HEMIFUMARATE (BISOPROLOL HEMIFUMARATE) [Concomitant]
  2. CLOPIDOGREL [Suspect]
     Indication: ANTIPLATELET THERAPY
     Dosage: 75 MG, QD, ORAL
     Route: 048
     Dates: start: 20070708, end: 20071019
  3. ASPIRIN [Suspect]
     Indication: ANTIPLATELET THERAPY
     Dosage: 200 MG, QD, ORAL
     Route: 048
     Dates: start: 20070708, end: 20071019
  4. ISOSORBIDE DINITRATE [Concomitant]
  5. ROSUVASTATIN CALCIUM [Concomitant]
  6. PLETAL [Suspect]
     Indication: ANTIPLATELET THERAPY
     Dosage: 100 MG, BID, ORAL
     Route: 048
     Dates: start: 20070807, end: 20071019

REACTIONS (1)
  - ACUTE MYELOID LEUKAEMIA [None]
